FAERS Safety Report 13897801 (Version 4)
Quarter: 2018Q1

REPORT INFORMATION
  Report Type: Report from Study
  Country: US (occurrence: US)
  Receive Date: 20170823
  Receipt Date: 20180119
  Transmission Date: 20180508
  Serious: No
  Sender: FDA-Public Use
  Company Number: PHEH2017US026895

PATIENT
  Age: 3 Year
  Sex: Female

DRUGS (3)
  1. ILARIS [Suspect]
     Active Substance: CANAKINUMAB
     Dosage: EVERY 4 WEEKS
     Route: 065
     Dates: start: 20171011
  2. ILARIS [Suspect]
     Active Substance: CANAKINUMAB
     Dosage: EVERY 4 WEEKS
     Route: 065
     Dates: start: 20171111
  3. ILARIS [Suspect]
     Active Substance: CANAKINUMAB
     Indication: PYREXIA
     Dosage: 60 MG, EVERY 4 WEEKS
     Route: 058

REACTIONS (6)
  - Irritability [Unknown]
  - Pyrexia [Unknown]
  - Lethargy [Unknown]
  - Inappropriate schedule of drug administration [Unknown]
  - Blood glucose decreased [Unknown]
  - Vomiting [Unknown]

NARRATIVE: CASE EVENT DATE: 20171216
